FAERS Safety Report 18269772 (Version 3)
Quarter: 2020Q3

REPORT INFORMATION
  Report Type: Spontaneous
  Country: US (occurrence: US)
  Receive Date: 20200915
  Receipt Date: 20200930
  Transmission Date: 20201103
  Serious: Yes (Hospitalization)
  Sender: FDA-Public Use
  Company Number: US-BAUSCH-BL-2020-026120

PATIENT
  Age: 67 Year
  Sex: Male

DRUGS (3)
  1. DILTIAZEM HCL EXTENDED?RELEASE CAPSULES [Suspect]
     Active Substance: DILTIAZEM HYDROCHLORIDE
     Indication: PRODUCT USE IN UNAPPROVED INDICATION
  2. DILTIAZEM HCL EXTENDED?RELEASE CAPSULES [Suspect]
     Active Substance: DILTIAZEM HYDROCHLORIDE
     Indication: ATRIAL TACHYCARDIA
     Route: 048
     Dates: start: 2020, end: 2020
  3. KLONOPIN [Concomitant]
     Active Substance: CLONAZEPAM
     Indication: ATRIAL TACHYCARDIA

REACTIONS (5)
  - Blood pressure increased [Recovered/Resolved]
  - Myocardial infarction [Recovered/Resolved]
  - Atrial fibrillation [Recovered/Resolved]
  - Drug ineffective for unapproved indication [Unknown]
  - Product use in unapproved indication [Unknown]

NARRATIVE: CASE EVENT DATE: 2020
